FAERS Safety Report 10075910 (Version 1)
Quarter: 2014Q2

REPORT INFORMATION
  Report Type: Spontaneous
  Country: GB (occurrence: GB)
  Receive Date: 20140414
  Receipt Date: 20140414
  Transmission Date: 20141212
  Serious: Yes (Hospitalization, Other)
  Sender: FDA-Public Use
  Company Number: GB-BAYER-2014-054592

PATIENT
  Age: 30 Year
  Sex: Female
  Weight: 58.96 kg

DRUGS (1)
  1. MIRENA [Suspect]
     Dosage: 20 MCG/24HR, CONT
     Route: 015
     Dates: start: 201103, end: 20140331

REACTIONS (12)
  - Acne [Recovering/Resolving]
  - Anxiety [Unknown]
  - Depressed mood [Unknown]
  - Dry skin [Recovering/Resolving]
  - Feeling abnormal [Unknown]
  - Urticaria [Recovering/Resolving]
  - Increased appetite [Unknown]
  - Hyperaesthesia [Recovering/Resolving]
  - Mood swings [Unknown]
  - Abdominal pain upper [Unknown]
  - Premenstrual syndrome [Recovering/Resolving]
  - Weight increased [Recovering/Resolving]
